FAERS Safety Report 24138227 (Version 1)
Quarter: 2024Q3

REPORT INFORMATION
  Report Type: Spontaneous
  Country: CA (occurrence: CA)
  Receive Date: 20240725
  Receipt Date: 20240725
  Transmission Date: 20241016
  Serious: Yes (Life-Threatening)
  Sender: SANOFI AVENTIS
  Company Number: CA-SA-SAC20240724000964

PATIENT
  Age: 71 Year
  Sex: Female
  Weight: 86.1 kg

DRUGS (1)
  1. AVAPRO [Suspect]
     Active Substance: IRBESARTAN
     Indication: Hypertension
     Dosage: 150 MG, QD

REACTIONS (3)
  - Dry throat [Recovered/Resolved]
  - Pruritus [Recovered/Resolved]
  - Throat tightness [Recovered/Resolved]
